FAERS Safety Report 17284452 (Version 1)
Quarter: 2020Q1

REPORT INFORMATION
  Report Type: Report from Study
  Country: GB (occurrence: GB)
  Receive Date: 20200117
  Receipt Date: 20200117
  Transmission Date: 20200409
  Serious: Yes (Other)
  Sender: FDA-Public Use
  Company Number: NVSC2020GB005861

PATIENT
  Age: 79 Year
  Sex: Male

DRUGS (2)
  1. SANDOSTATIN LAR DEPOT [Suspect]
     Active Substance: OCTREOTIDE ACETATE
     Indication: NEUROENDOCRINE TUMOUR
     Dosage: 30 MG, QMO
     Route: 030
     Dates: start: 201810
  2. SANDOSTATIN [Suspect]
     Active Substance: OCTREOTIDE ACETATE
     Indication: PRODUCT USED FOR UNKNOWN INDICATION
     Dosage: 30 MG
     Route: 030
     Dates: start: 201810

REACTIONS (3)
  - Somnolence [Unknown]
  - Diarrhoea [Unknown]
  - Pulmonary oedema [Unknown]

NARRATIVE: CASE EVENT DATE: 20200102
